FAERS Safety Report 5835078-1 (Version None)
Quarter: 2008Q3

REPORT INFORMATION
  Report Type: 
  Country: None (occurrence: None)
  Receive Date: 20080805
  Receipt Date: 20080805
  Transmission Date: 20090109
  Serious: No
  Sender: FDA-Public Use
  Company Number: None

PATIENT
  Age: 38 Year
  Sex: Male
  Weight: 71.6683 kg

DRUGS (1)
  1. ECONAZOLE NITRATE [Suspect]
     Indication: FUNGAL INFECTION
     Dosage: 75 MG TID TOP
     Route: 061
     Dates: start: 20080729, end: 20080731

REACTIONS (3)
  - APPLICATION SITE REACTION [None]
  - RASH PRURITIC [None]
  - URTICARIA [None]
